FAERS Safety Report 8100697-9 (Version None)
Quarter: 2012Q1

REPORT INFORMATION
  Report Type: 
  Country: None (occurrence: None)
  Receive Date: 20120129
  Receipt Date: 20111101
  Transmission Date: 20120608
  Serious: No
  Sender: FDA-Public Use
  Company Number: US-ABBOTT-11P-163-0729465-00

PATIENT
  Age: 69 Year
  Sex: Female

DRUGS (11)
  1. PENTASA [Concomitant]
     Indication: CROHN'S DISEASE
  2. THYROID TAB [Concomitant]
     Indication: HYPOTHYROIDISM
     Dosage: 30MG DAILY
  3. DEPLIN [Concomitant]
     Indication: VITAMIN B COMPLEX DEFICIENCY
     Dosage: DAILY
  4. MULTIVITAMIN [Concomitant]
     Indication: VITAMIN SUPPLEMENTATION
     Dosage: DAILY
  5. CALCIUM [Concomitant]
     Indication: VITAMIN SUPPLEMENTATION
     Dosage: DAILY
  6. HUMIRA [Suspect]
     Indication: COLITIS ULCERATIVE
     Dates: start: 20110314
  7. VITAMIN D [Concomitant]
     Indication: MINERAL SUPPLEMENTATION
     Dosage: DAILY
  8. LOVAZA [Concomitant]
     Indication: VITAMIN SUPPLEMENTATION
     Dosage: DAILY
  9. HUMIRA [Suspect]
     Indication: CROHN'S DISEASE
  10. PENTASA [Concomitant]
     Indication: COLITIS ULCERATIVE
     Dosage: 500MG QID
  11. FISH OIL [Concomitant]
     Indication: VITAMIN SUPPLEMENTATION
     Dosage: DAILY

REACTIONS (11)
  - FATIGUE [None]
  - SEASONAL ALLERGY [None]
  - DYSPNOEA [None]
  - VULVOVAGINAL PRURITUS [None]
  - NASOPHARYNGITIS [None]
  - VITAMIN B12 DEFICIENCY [None]
  - UPPER RESPIRATORY TRACT CONGESTION [None]
  - PYREXIA [None]
  - COUGH [None]
  - INJECTION SITE HAEMORRHAGE [None]
  - WHEEZING [None]
